FAERS Safety Report 8264339-4 (Version None)
Quarter: 2012Q2

REPORT INFORMATION
  Report Type: 
  Country: None (occurrence: None)
  Receive Date: 20120403
  Receipt Date: 20120321
  Transmission Date: 20120825
  Serious: Yes (Hospitalization, Other)
  Sender: FDA-Public Use
  Company Number: US-CYPR-2012-000007

PATIENT
  Sex: Male
  Weight: 106.5953 kg

DRUGS (11)
  1. CLOPIDOGREL [Suspect]
     Indication: ANTIPLATELET THERAPY
     Dosage: (75 MG QD ORAL)
     Route: 048
     Dates: start: 20110107, end: 20120202
  2. LOPRESSOR [Concomitant]
  3. LISINOPRIL [Concomitant]
  4. ASPIRIN [Suspect]
     Indication: CORONARY ARTERY DISEASE
     Dosage: (81 MG QD ORAL)
     Route: 048
     Dates: start: 20100120
  5. LIPITOR [Concomitant]
  6. NORVASC [Concomitant]
  7. INSULIN NOVOLIN [Concomitant]
  8. CIPHER STENT [Concomitant]
  9. PROTONIX [Concomitant]
  10. LOVENOX [Concomitant]
  11. METFORMIN HCL [Concomitant]

REACTIONS (3)
  - CORONARY ARTERY OCCLUSION [None]
  - IMPAIRED HEALING [None]
  - MYOCARDIAL ISCHAEMIA [None]
